FAERS Safety Report 9898548 (Version 2)
Quarter: 2014Q1

REPORT INFORMATION
  Report Type: Spontaneous
  Country: US (occurrence: US)
  Receive Date: 20140214
  Receipt Date: 20140214
  Transmission Date: 20141002
  Serious: No
  Sender: FDA-Public Use
  Company Number: US-GILEAD-2011-0040861

PATIENT
  Age: 63 Year
  Sex: Female
  Weight: 59.87 kg

DRUGS (4)
  1. LETAIRIS [Suspect]
     Indication: PULMONARY HYPERTENSION
     Route: 048
     Dates: start: 20110606, end: 20110620
  2. LETAIRIS [Suspect]
     Indication: RIGHT VENTRICULAR FAILURE
  3. TRACLEER [Concomitant]
  4. REVATIO [Concomitant]

REACTIONS (4)
  - Syncope [Not Recovered/Not Resolved]
  - Adverse drug reaction [Unknown]
  - Constipation [Not Recovered/Not Resolved]
  - Swelling [Not Recovered/Not Resolved]
